FAERS Safety Report 6296760-8 (Version None)
Quarter: 2009Q3

REPORT INFORMATION
  Report Type: 
  Country: None (occurrence: None)
  Receive Date: 20090804
  Receipt Date: 20090115
  Transmission Date: 20100115
  Serious: No
  Sender: FDA-Public Use
  Company Number: US-BRISTOL-MYERS SQUIBB COMPANY-14450670

PATIENT
  Age: 56 Year
  Sex: Female

DRUGS (1)
  1. TEQUIN [Suspect]
     Indication: BRONCHITIS

REACTIONS (1)
  - FIBROMYALGIA [None]
